FAERS Safety Report 24647523 (Version 1)
Quarter: 2024Q4

REPORT INFORMATION
  Report Type: Spontaneous
  Country: US (occurrence: None)
  Receive Date: 20241120
  Receipt Date: 20241120
  Transmission Date: 20250114
  Serious: Yes (Other)
  Sender: Public
  Company Number: None

PATIENT
  Age: 79 Year
  Sex: Female
  Weight: 82 kg

DRUGS (1)
  1. VANCOMYCIN [Suspect]
     Active Substance: VANCOMYCIN
     Indication: Cellulitis
     Dosage: OTHER FREQUENCY : ONCE;?
     Route: 042
     Dates: start: 20241114, end: 20241114

REACTIONS (6)
  - Dialysis [None]
  - Nausea [None]
  - Pruritus [None]
  - Dyspnoea [None]
  - Oral mucosal eruption [None]
  - Drug hypersensitivity [None]

NARRATIVE: CASE EVENT DATE: 20241114
